FAERS Safety Report 6956905-0 (Version None)
Quarter: 2010Q3

REPORT INFORMATION
  Report Type: 
  Country: None (occurrence: None)
  Receive Date: 20100830
  Receipt Date: 20100707
  Transmission Date: 20110219
  Serious: No
  Sender: FDA-Public Use
  Company Number: US-ALLERGAN-1008766US

PATIENT
  Age: 53 Year
  Sex: Female
  Weight: 77.098 kg

DRUGS (5)
  1. SANCTURA XR [Suspect]
     Indication: HYPERTONIC BLADDER
     Dosage: 60 MG, QD
     Route: 048
     Dates: start: 20100601
  2. SANCTURA XR [Suspect]
     Indication: AUTOMATIC BLADDER
  3. LAMICTAL [Concomitant]
  4. WELLBUTRIN [Concomitant]
     Dosage: UNK
  5. ESTRATEST H.S. [Concomitant]

REACTIONS (1)
  - INSOMNIA [None]
